FAERS Safety Report 7643620-3 (Version None)
Quarter: 2011Q3

REPORT INFORMATION
  Report Type: 
  Country: None (occurrence: None)
  Receive Date: 20110729
  Receipt Date: 20110718
  Transmission Date: 20111222
  Serious: Yes (Other)
  Sender: FDA-Public Use
  Company Number: PHEH2011US00512

PATIENT
  Sex: Female

DRUGS (1)
  1. AREDIA [Suspect]
     Dates: start: 19990101, end: 20040101

REACTIONS (11)
  - ANXIETY [None]
  - HAEMOGLOBIN DECREASED [None]
  - INTERVERTEBRAL DISC PROTRUSION [None]
  - LUMBAR SPINAL STENOSIS [None]
  - RED BLOOD CELL COUNT DECREASED [None]
  - RENAL CYST [None]
  - CONSTIPATION [None]
  - BACK PAIN [None]
  - METASTASES TO SPINE [None]
  - METASTASES TO BONE [None]
  - HEPATIC CYST [None]
